FAERS Safety Report 6310516-9 (Version None)
Quarter: 2009Q3

REPORT INFORMATION
  Report Type: 
  Country: None (occurrence: None)
  Receive Date: 20090811
  Receipt Date: 20090508
  Transmission Date: 20100115
  Serious: No
  Sender: FDA-Public Use
  Company Number: 1000006155

PATIENT
  Age: 36 Year
  Sex: Female

DRUGS (6)
  1. SAVELLA [Suspect]
     Indication: FIBROMYALGIA
     Dosage: 12.5 MG (12.5 MG, 1 IN 1 D), ORAL
     Route: 048
     Dates: start: 20090507, end: 20090507
  2. LYRICA [Concomitant]
  3. FLEXERIL [Concomitant]
  4. AXERT [Concomitant]
  5. NAPROXEN [Concomitant]
  6. PREDNISONE TAB [Concomitant]

REACTIONS (3)
  - HALLUCINATION [None]
  - HEART RATE INCREASED [None]
  - TREMOR [None]
